FAERS Safety Report 9219543 (Version 3)
Quarter: 2013Q2

REPORT INFORMATION
  Report Type: Report from Study
  Country: GB (occurrence: GB)
  Receive Date: 20130409
  Receipt Date: 20130514
  Transmission Date: 20140414
  Serious: Yes (Death, Hospitalization, Other)
  Sender: FDA-Public Use
  Company Number: GB-BRISTOL-MYERS SQUIBB COMPANY-18728311

PATIENT
  Age: 63 Year
  Sex: Male

DRUGS (7)
  1. IPILIMUMAB [Suspect]
     Indication: METASTATIC MALIGNANT MELANOMA
     Dosage: 1 DF: 195 UNITS NOS.
     Route: 042
     Dates: start: 20130219, end: 20130405
  2. DEXAMETHASONE [Concomitant]
     Route: 042
     Dates: start: 20130323, end: 20130401
  3. DEXAMETHASONE [Concomitant]
     Route: 042
     Dates: start: 20130323, end: 20130401
  4. PABRINEX [Concomitant]
     Route: 042
     Dates: start: 20130326, end: 20130328
  5. METHYLPREDNISONE [Concomitant]
     Route: 042
     Dates: start: 20130401, end: 20130409
  6. CO-AMOXICLAV [Concomitant]
     Route: 042
     Dates: start: 20130407, end: 20130408
  7. AUGMENTIN [Concomitant]
     Dosage: VIA MJ TUBE
     Dates: start: 20130409, end: 20130411

REACTIONS (8)
  - Malignant neoplasm progression [Fatal]
  - Nausea [Recovered/Resolved]
  - Vomiting [Recovered/Resolved]
  - Decreased appetite [Not Recovered/Not Resolved]
  - Dehydration [Not Recovered/Not Resolved]
  - Fatigue [Not Recovered/Not Resolved]
  - Weight decreased [Not Recovered/Not Resolved]
  - Diarrhoea [Not Recovered/Not Resolved]
